FAERS Safety Report 8350271-4 (Version None)
Quarter: 2012Q2

REPORT INFORMATION
  Report Type: 
  Country: None (occurrence: None)
  Receive Date: 20120510
  Receipt Date: 20120430
  Transmission Date: 20120825
  Serious: Yes (Other)
  Sender: FDA-Public Use
  Company Number: US-ROCHE-1064484

PATIENT
  Sex: Female
  Weight: 90.8 kg

DRUGS (7)
  1. PRISTIQ [Suspect]
  2. ATENOLOL [Concomitant]
  3. KLONOPIN [Suspect]
  4. WELLBUTRIN [Concomitant]
     Dates: start: 20120330
  5. PRISTIQ [Suspect]
     Indication: DEPRESSION
     Dates: start: 20110101
  6. KLONOPIN [Suspect]
     Indication: BIPOLAR DISORDER
     Dates: start: 20050101
  7. CARVEDILOL [Concomitant]

REACTIONS (10)
  - STRESS [None]
  - DRUG DOSE OMISSION [None]
  - SURGERY [None]
  - ANGER [None]
  - UNEVALUABLE EVENT [None]
  - FORMICATION [None]
  - DYSPHONIA [None]
  - ANXIETY [None]
  - WEIGHT INCREASED [None]
  - HEADACHE [None]
